FAERS Safety Report 9783058 (Version 1)
Quarter: 2013Q4

REPORT INFORMATION
  Report Type: Spontaneous
  Country: US (occurrence: US)
  Receive Date: 20131226
  Receipt Date: 20131226
  Transmission Date: 20140711
  Serious: No
  Sender: FDA-Public Use
  Company Number: US-GILEAD-2013-0090554

PATIENT
  Sex: Female

DRUGS (3)
  1. LETAIRIS [Suspect]
     Indication: PRODUCT USED FOR UNKNOWN INDICATION
     Dosage: 5 MG, QD
     Route: 048
     Dates: start: 20111121
  2. SILDENAFIL CITRATE [Concomitant]
  3. TRACLEER                           /01587701/ [Concomitant]

REACTIONS (3)
  - Malaise [Unknown]
  - Dyspnoea [Unknown]
  - Fatigue [Unknown]
